FAERS Safety Report 23732785 (Version 3)
Quarter: 2024Q3

REPORT INFORMATION
  Report Type: Spontaneous
  Country: US (occurrence: US)
  Receive Date: 20240411
  Receipt Date: 20240809
  Transmission Date: 20241017
  Serious: No
  Sender: PFIZER
  Company Number: US-PFIZER INC-202400078717

PATIENT
  Age: 3 Year
  Sex: Male
  Weight: 13.79 kg

DRUGS (1)
  1. GENOTROPIN [Suspect]
     Active Substance: SOMATROPIN
     Indication: Growth hormone deficiency
     Dosage: 0.5 MG, 1X/DAY
     Route: 058

REACTIONS (3)
  - Poor quality device used [Unknown]
  - Liquid product physical issue [Unknown]
  - Device leakage [Unknown]
